FAERS Safety Report 4836249-3 (Version None)
Quarter: 2005Q4

REPORT INFORMATION
  Report Type: 
  Country: None (occurrence: None)
  Receive Date: 20051121
  Receipt Date: 20051121
  Transmission Date: 20060501
  Serious: Yes (Other)
  Sender: FDA-Public Use
  Company Number: None

PATIENT
  Age: 29 Year
  Sex: Female
  Weight: 58.9676 kg

DRUGS (4)
  1. TYLENOL PM (APAP 500 MG AND DIPHENHYDRAMINE 25 MG PER TABLET) [Suspect]
     Indication: INSOMNIA
     Dosage: 2 TABLET BY MOUTH PRN
  2. . [Concomitant]
  3. KARIVA [Concomitant]
  4. M.V.I. [Concomitant]

REACTIONS (4)
  - DYSKINESIA [None]
  - FORMICATION [None]
  - INSOMNIA [None]
  - RESTLESS LEGS SYNDROME [None]
